FAERS Safety Report 4382779-0 (Version None)
Quarter: 2004Q2

REPORT INFORMATION
  Report Type: 
  Country: None (occurrence: None)
  Receive Date: 20040603
  Receipt Date: 20040226
  Transmission Date: 20050107
  Serious: Yes (Hospitalization)
  Sender: FDA-Public Use
  Company Number: 200411508US

PATIENT
  Sex: Female

DRUGS (1)
  1. ENOXAPARIN SODIUM [Suspect]
     Dosage: 40 MG QD SC
     Route: 058
     Dates: start: 20040127, end: 20040204

REACTIONS (1)
  - MUSCLE HAEMORRHAGE [None]
